FAERS Safety Report 13168084 (Version 2)
Quarter: 2017Q2

REPORT INFORMATION
  Report Type: Spontaneous
  Country: US (occurrence: US)
  Receive Date: 20170131
  Receipt Date: 20170609
  Transmission Date: 20170830
  Serious: No
  Sender: FDA-Public Use
  Company Number: US-009507513-1701USA002382

PATIENT
  Age: 21 Year
  Sex: Female
  Weight: 76.64 kg

DRUGS (2)
  1. NEXPLANON [Suspect]
     Active Substance: ETONOGESTREL
     Dosage: ANOTHER IMPLANT IN LEFT ARM
     Route: 059
     Dates: start: 20170103
  2. NEXPLANON [Suspect]
     Active Substance: ETONOGESTREL
     Indication: CONTRACEPTION
     Dosage: 1 ROD EVERY 3 YEARS IN RIGHT ARM
     Route: 059
     Dates: start: 20161129, end: 20161229

REACTIONS (4)
  - Implant site infection [Recovered/Resolved]
  - Implant site discharge [Recovered/Resolved]
  - Device expulsion [Recovered/Resolved]
  - Complication associated with device [Recovered/Resolved]

NARRATIVE: CASE EVENT DATE: 201612
